FAERS Safety Report 8009440-5 (Version None)
Quarter: 2011Q4

REPORT INFORMATION
  Report Type: 
  Country: None (occurrence: None)
  Receive Date: 20111227
  Receipt Date: 20111220
  Transmission Date: 20120403
  Serious: Yes (Hospitalization, Other)
  Sender: FDA-Public Use
  Company Number: PL-ROCHE-1023861

PATIENT
  Sex: Female
  Weight: 68 kg

DRUGS (4)
  1. CONTROLOC (POLAND) [Concomitant]
  2. METHOTREXATE [Concomitant]
  3. FOLIC ACID [Concomitant]
  4. MABTHERA [Suspect]
     Indication: RHEUMATOID ARTHRITIS
     Dosage: INFUSION,
     Route: 042
     Dates: start: 20110504

REACTIONS (7)
  - PERICARDIAL EFFUSION [None]
  - PRURITUS [None]
  - GENITAL INFECTION [None]
  - MALAISE [None]
  - RASH [None]
  - RHEUMATOID ARTHRITIS [None]
  - ARRHYTHMIA [None]
